FAERS Safety Report 13999327 (Version 2)
Quarter: 2017Q3

REPORT INFORMATION
  Report Type: Spontaneous
  Country: US (occurrence: US)
  Receive Date: 20170922
  Receipt Date: 20170929
  Transmission Date: 20171128
  Serious: Yes (Hospitalization)
  Sender: FDA-Public Use
  Company Number: US-ELI_LILLY_AND_COMPANY-US201709004285

PATIENT
  Age: 62 Year
  Sex: Female

DRUGS (34)
  1. PANTOPRAZOLE [Concomitant]
     Active Substance: PANTOPRAZOLE
     Dosage: UNK, UNKNOWN
     Route: 065
  2. TRAZODONE [Concomitant]
     Active Substance: TRAZODONE HYDROCHLORIDE
     Dosage: UNK, UNKNOWN
     Route: 065
  3. ALPRAZOLAM. [Concomitant]
     Active Substance: ALPRAZOLAM
     Dosage: UNK, UNKNOWN
     Route: 065
  4. PROAIR HFA [Concomitant]
     Active Substance: ALBUTEROL SULFATE
     Dosage: UNK, UNKNOWN
     Route: 065
  5. VITAMINE B COMPLEX [Concomitant]
     Dosage: UNK, UNKNOWN
     Route: 065
  6. DICYCLOMINE                        /00068601/ [Concomitant]
     Active Substance: DICYCLOMINE HYDROCHLORIDE
     Dosage: UNK, UNKNOWN
     Route: 065
  7. OXYCODONE/APAP                     /00867901/ [Concomitant]
     Active Substance: ACETAMINOPHEN\OXYCODONE HYDROCHLORIDE
     Dosage: UNK, UNKNOWN
     Route: 065
  8. ZOLPIDEM [Concomitant]
     Active Substance: ZOLPIDEM\ZOLPIDEM TARTRATE
     Dosage: UNK, UNKNOWN
     Route: 065
  9. RENVELA [Concomitant]
     Active Substance: SEVELAMER CARBONATE
     Dosage: UNK, UNKNOWN
     Route: 065
  10. OXYCODONE W/APAP [Concomitant]
     Active Substance: ACETAMINOPHEN\OXYCODONE HYDROCHLORIDE
     Dosage: UNK, UNKNOWN
     Route: 065
  11. METOCLOPRAM [Concomitant]
     Active Substance: METOCLOPRAMIDE
     Dosage: UNK, UNKNOWN
     Route: 065
  12. TRIAMCINOLON                       /00031901/ [Concomitant]
     Dosage: UNK, UNKNOWN
     Route: 065
  13. CHOLESTYRAMINE. [Concomitant]
     Active Substance: CHOLESTYRAMINE
     Dosage: UNK, UNKNOWN
     Route: 065
  14. METOPROL XL [Concomitant]
     Dosage: UNK, UNKNOWN
     Route: 065
  15. OXYCODONE [Concomitant]
     Active Substance: OXYCODONE
     Dosage: UNK, UNKNOWN
     Route: 065
  16. RANITIDINE. [Concomitant]
     Active Substance: RANITIDINE
     Dosage: UNK, UNKNOWN
     Route: 065
  17. AMBIEN [Concomitant]
     Active Substance: ZOLPIDEM TARTRATE
     Dosage: UNK, UNKNOWN
     Route: 065
  18. ESOMEPRA [Concomitant]
     Active Substance: ESOMEPRAZOLE
     Dosage: UNK, UNKNOWN
     Route: 065
  19. HYDROXYZINE [Concomitant]
     Active Substance: HYDROXYZINE HYDROCHLORIDE
     Dosage: UNK, UNKNOWN
     Route: 065
  20. HYDROXYZINE HCL [Concomitant]
     Active Substance: HYDROXYZINE HYDROCHLORIDE
     Dosage: UNK, UNKNOWN
     Route: 065
  21. ESOMEPRAZOLE MAGNESIUM. [Concomitant]
     Active Substance: ESOMEPRAZOLE MAGNESIUM
     Dosage: UNK, UNKNOWN
     Route: 065
  22. ASPIRIN                            /00002701/ [Concomitant]
     Active Substance: ASPIRIN
     Dosage: UNK, UNKNOWN
     Route: 065
  23. OMEPRAZOLE. [Concomitant]
     Active Substance: OMEPRAZOLE
     Dosage: UNK, UNKNOWN
     Route: 065
  24. ADCIRCA [Suspect]
     Active Substance: TADALAFIL
     Indication: PULMONARY ARTERIAL HYPERTENSION
     Dosage: 20 MG, UNKNOWN
     Route: 065
     Dates: start: 20170726
  25. LETAIRIS [Suspect]
     Active Substance: AMBRISENTAN
     Indication: PULMONARY HYPERTENSION
     Dosage: 5 MG, DAILY
     Route: 065
     Dates: start: 20160511
  26. FERROUS SULFATE. [Concomitant]
     Active Substance: FERROUS SULFATE
     Dosage: UNK, UNKNOWN
     Route: 065
  27. FOLIC ACID. [Concomitant]
     Active Substance: FOLIC ACID
     Dosage: UNK, UNKNOWN
     Route: 065
  28. CHOLESTYRAMIN [Concomitant]
     Dosage: UNK, UNKNOWN
     Route: 065
  29. METRONIDAZOL                       /00012501/ [Concomitant]
     Active Substance: METRONIDAZOLE
     Dosage: UNK, UNKNOWN
     Route: 065
  30. ONDANSETRON [Concomitant]
     Active Substance: ONDANSETRON
     Dosage: UNK, UNKNOWN
     Route: 065
  31. SUCRALFATE. [Concomitant]
     Active Substance: SUCRALFATE
     Dosage: UNK, UNKNOWN
     Route: 065
  32. B-COMPLEX                          /00003501/ [Concomitant]
     Active Substance: CYANOCOBALAMIN\DEXPANTHENOL\NIACINAMIDE\PYRIDOXINE HYDROCHLORIDE\RIBOFLAVIN 5^-PHOSPHATE SODIUM\THIAMINE HYDROCHLORIDE\VITAMIN B COMPLEX
     Dosage: UNK, UNKNOWN
     Route: 065
  33. VANCOMYCIN [Concomitant]
     Active Substance: VANCOMYCIN
     Dosage: UNK, UNKNOWN
     Route: 065
  34. UPTRAVI [Concomitant]
     Active Substance: SELEXIPAG
     Dosage: UNK, UNKNOWN
     Route: 065

REACTIONS (2)
  - Vomiting [Not Recovered/Not Resolved]
  - Diarrhoea [Not Recovered/Not Resolved]
